FAERS Safety Report 13129324 (Version 1)
Quarter: 2017Q1

REPORT INFORMATION
  Report Type: Spontaneous
  Country: GB (occurrence: GB)
  Receive Date: 20170119
  Receipt Date: 20170119
  Transmission Date: 20170428
  Serious: Yes (Other)
  Sender: FDA-Public Use
  Company Number: GB-BAXTER-2017BAX001266

PATIENT
  Age: 39 Year
  Sex: Female

DRUGS (1)
  1. METRONIDAZOLE 500 MG / 100 ML INTRAVENOUS INFUSION [Suspect]
     Active Substance: METRONIDAZOLE
     Indication: PANCREATITIS ACUTE
     Route: 042

REACTIONS (2)
  - Visual acuity reduced [Recovered/Resolved]
  - Hypermetropia [Recovered/Resolved]
